FAERS Safety Report 5124569-7 (Version None)
Quarter: 2006Q3

REPORT INFORMATION
  Report Type: 
  Country: None (occurrence: None)
  Receive Date: 20060821
  Receipt Date: 20060505
  Transmission Date: 20061208
  Serious: No
  Sender: FDA-Public Use
  Company Number: TPA2006A00775

PATIENT
  Age: 74 Year
  Sex: Male
  Weight: 84.8226 kg

DRUGS (4)
  1. ROZEREM [Suspect]
     Indication: INSOMNIA
     Dosage: 8 MG, QHS, PER ORAL
     Route: 048
     Dates: start: 20060427
  2. VERAPAMIL (VERAPAMIL) (240 MILLIGRAM) [Concomitant]
  3. MINOXIDIL (MINOXIDIL) (10 MILLIGRAM) [Concomitant]
  4. ENALAPRIL (ENALAPRIL) (20 MILLIGRAM) [Concomitant]

REACTIONS (2)
  - DIZZINESS [None]
  - DRUG INEFFECTIVE [None]
